FAERS Safety Report 4756311-3 (Version None)
Quarter: 2005Q3

REPORT INFORMATION
  Report Type: 
  Country: None (occurrence: None)
  Receive Date: 20050830
  Receipt Date: 20050526
  Transmission Date: 20060218
  Serious: No
  Sender: FDA-Public Use
  Company Number: US-GLAXOSMITHKLINE-A0560286A

PATIENT
  Age: 58 Year
  Sex: Female

DRUGS (8)
  1. WELLBUTRIN XL [Suspect]
     Indication: DEPRESSION
     Dosage: 300MG PER DAY
     Route: 048
  2. METFORMIN [Concomitant]
  3. ZOCOR [Concomitant]
  4. ALTACE [Concomitant]
  5. SLIM-FAST [Concomitant]
  6. PROVENTIL [Concomitant]
  7. ADVAIR DISKUS 100/50 [Concomitant]
  8. ASPIRIN [Concomitant]

REACTIONS (2)
  - DIARRHOEA [None]
  - STOOL ANALYSIS ABNORMAL [None]
